FAERS Safety Report 8995729 (Version 11)
Quarter: 2016Q1

REPORT INFORMATION
  Report Type: Report from Study
  Country: US (occurrence: US)
  Receive Date: 20130103
  Receipt Date: 20160226
  Transmission Date: 20160526
  Serious: Yes (Death, Other)
  Sender: FDA-Public Use
  Company Number: US-AMGEN-USACT2012083794

PATIENT
  Age: 14 Year
  Sex: Female
  Weight: 45.5 kg

DRUGS (30)
  1. CALCIUM [Concomitant]
     Active Substance: CALCIUM
     Indication: HYPERPHOSPHATAEMIA
     Dosage: 5200 MG, TID
     Route: 048
     Dates: start: 20120405, end: 20121226
  2. HYDROCORTISONE. [Concomitant]
     Active Substance: HYDROCORTISONE
     Indication: KERATOSIS PILARIS
     Dosage: UNK UNK, QD
     Route: 061
     Dates: start: 20121108, end: 20121226
  3. RENAGEL [Concomitant]
     Active Substance: SEVELAMER HYDROCHLORIDE
     Indication: HYPERPARATHYROIDISM SECONDARY
     Dosage: 400 MG, TID
     Route: 048
     Dates: start: 20120907, end: 20121108
  4. COZAAR [Concomitant]
     Active Substance: LOSARTAN POTASSIUM
     Indication: HYPERTENSION
     Dosage: 100 MG, QD
     Route: 048
     Dates: start: 20110202, end: 20121226
  5. RANITIDINE [Concomitant]
     Active Substance: RANITIDINE\RANITIDINE HYDROCHLORIDE
     Indication: CHRONIC KIDNEY DISEASE
     Dosage: 150 MG, QD
     Route: 048
     Dates: start: 20120703, end: 20121227
  6. VITAMIN D [Concomitant]
     Active Substance: CHOLECALCIFEROL
     Indication: BLOOD PARATHYROID HORMONE ABNORMAL
  7. ZOFRAN [Concomitant]
     Active Substance: ONDANSETRON HYDROCHLORIDE
     Indication: NAUSEA
     Dosage: 4 MG, BID
     Route: 048
     Dates: start: 20120801, end: 20121227
  8. CALCIUM [Concomitant]
     Active Substance: CALCIUM
     Indication: HYPOCALCAEMIA
  9. CELLCEPT [Concomitant]
     Active Substance: MYCOPHENOLATE MOFETIL\MYCOPHENOLATE MOFETIL HYDROCHLORIDE
     Indication: IMMUNOSUPPRESSION
     Dosage: 500 MG, BID
     Route: 048
     Dates: start: 20120606, end: 20121226
  10. IVIGLOB EX [Concomitant]
     Active Substance: HUMAN IMMUNOGLOBULIN G
     Indication: IMMUNOSUPPRESSION
     Dosage: 80 G, ONE TIME DOSE
     Dates: start: 20121205, end: 20121205
  11. LABETALOL [Concomitant]
     Active Substance: LABETALOL\LABETALOL HYDROCHLORIDE
     Indication: HYPERTENSION
     Dosage: 300 MG, TID
     Route: 048
     Dates: start: 20120703, end: 20121226
  12. IMMUNOGLOBULIN [Concomitant]
     Active Substance: HUMAN IMMUNOGLOBULIN G
     Dosage: 80 G, UNK
     Dates: start: 20121205
  13. AUGMENTIN [Concomitant]
     Active Substance: AMOXICILLIN\CLAVULANATE POTASSIUM
     Dosage: 875 MG, AS NECESSARY
  14. ARANESP [Concomitant]
     Active Substance: DARBEPOETIN ALFA
     Indication: ANAEMIA
     Dosage: 40 MUG, UNK
     Route: 058
     Dates: start: 20120703, end: 20121226
  15. RENAGEL [Concomitant]
     Active Substance: SEVELAMER HYDROCHLORIDE
     Indication: HYPERPHOSPHATAEMIA
  16. VITAMIN D [Concomitant]
     Active Substance: CHOLECALCIFEROL
     Indication: HYPERPARATHYROIDISM SECONDARY
     Dosage: 1000 IU, QD
     Route: 048
     Dates: start: 20090901, end: 20121226
  17. AMLACTIN [Concomitant]
     Active Substance: AMMONIUM LACTATE
     Indication: KERATOSIS PILARIS
     Dosage: UNK UNK, QD
     Route: 061
     Dates: start: 20121108, end: 20121226
  18. AMOXICILLIN. [Concomitant]
     Active Substance: AMOXICILLIN
     Indication: ASPLENIA
     Dosage: 250 MG, BID
     Route: 048
     Dates: start: 20120118, end: 20121226
  19. FLONASE [Concomitant]
     Active Substance: FLUTICASONE PROPIONATE
     Indication: NASAL CONGESTION
     Dosage: 200 MUG, QD
     Route: 055
     Dates: start: 20100505, end: 20121226
  20. LORATADINE. [Concomitant]
     Active Substance: LORATADINE
     Indication: SEASONAL ALLERGY
     Dosage: 10 MG, QD
     Route: 048
     Dates: start: 20100602, end: 20121226
  21. PREDNISONE. [Concomitant]
     Active Substance: PREDNISONE
     Indication: IMMUNOSUPPRESSION
     Dosage: 10 MG, QD
     Route: 048
     Dates: start: 20121206, end: 20121226
  22. NORVASC [Concomitant]
     Active Substance: AMLODIPINE BESYLATE
     Dosage: 10 MG, UNK
  23. TUMS [Concomitant]
     Active Substance: CALCIUM CARBONATE
     Indication: HYPERPARATHYROIDISM SECONDARY
     Dosage: 1600 MG, TID
     Dates: start: 20120405, end: 20121226
  24. CALCITROL [Concomitant]
     Active Substance: CALCITRIOL
     Dosage: 0.25 MUG, UNK
  25. ZOFRAN [Concomitant]
     Active Substance: ONDANSETRON HYDROCHLORIDE
     Indication: VOMITING
  26. ZOFRAN [Concomitant]
     Active Substance: ONDANSETRON HYDROCHLORIDE
     Indication: DIARRHOEA
  27. NEPHRO VITE RX [Concomitant]
     Active Substance: ASCORBIC ACID\BIOTIN\CALCIUM PANTOTHENATE\CYANOCOBALAMIN\FOLIC ACID\NIACINAMIDE\PYRIDOXINE HYDROCHLORIDE\RIBOFLAVIN\THIAMINE MONONITRATE
     Indication: CHRONIC KIDNEY DISEASE
     Dosage: UNK UNK, QD
     Route: 048
     Dates: start: 20071017, end: 20121226
  28. GENTAMYCIN [Concomitant]
     Active Substance: GENTAMICIN
     Indication: CATHETER MANAGEMENT
     Dosage: UNK UNK, QOD
     Route: 061
     Dates: start: 20071017, end: 20121226
  29. CINACALCET HCL [Suspect]
     Active Substance: CINACALCET HYDROCHLORIDE
     Indication: HYPERPARATHYROIDISM SECONDARY
     Dosage: UNK
     Route: 065
     Dates: start: 20120719, end: 20121226
  30. CALCITRIOL. [Concomitant]
     Active Substance: CALCITRIOL
     Indication: HYPERPARATHYROIDISM SECONDARY
     Dosage: 0.25 MUG, QD
     Route: 048
     Dates: start: 20120502, end: 20121226

REACTIONS (2)
  - Cardiopulmonary failure [Fatal]
  - Hypocalcaemia [Fatal]

NARRATIVE: CASE EVENT DATE: 20121227
